FAERS Safety Report 8084555-4 (Version None)
Quarter: 2012Q1

REPORT INFORMATION
  Report Type: 
  Country: None (occurrence: None)
  Receive Date: 20120128
  Receipt Date: 20110316
  Transmission Date: 20120608
  Serious: No
  Sender: FDA-Public Use
  Company Number: US-ABBOTT-11P-163-0712021-00

PATIENT
  Sex: Male

DRUGS (11)
  1. ACETAMINOPHEN [Concomitant]
     Indication: PAIN
     Dosage: OTC
  2. METHOTREXATE [Concomitant]
     Indication: PRODUCT USED FOR UNKNOWN INDICATION
  3. TRAZODONE HCL [Concomitant]
     Indication: PRODUCT USED FOR UNKNOWN INDICATION
     Dosage: AT BEDTIME
  4. VICODIN [Concomitant]
     Indication: PRODUCT USED FOR UNKNOWN INDICATION
     Dosage: 5/500 MG, ONCE EVERY 4 HOURS
  5. METOLAZONE [Concomitant]
     Indication: BLOOD PRESSURE
  6. HUMIRA [Suspect]
     Dates: start: 20101216
  7. KLOR-CON [Concomitant]
     Indication: PRODUCT USED FOR UNKNOWN INDICATION
     Route: 048
  8. HUMIRA [Suspect]
     Indication: RHEUMATOID ARTHRITIS
  9. FOLIC ACID [Concomitant]
     Indication: PRODUCT USED FOR UNKNOWN INDICATION
     Route: 048
  10. TRAMADOL HCL [Concomitant]
     Indication: PAIN
  11. TOPICAL GEL [Concomitant]
     Indication: ARTHRITIS
     Route: 061

REACTIONS (1)
  - DRUG INEFFECTIVE [None]
